FAERS Safety Report 5976995-1 (Version None)
Quarter: 2008Q4

REPORT INFORMATION
  Report Type: 
  Country: None (occurrence: None)
  Receive Date: 20081203
  Receipt Date: 20080528
  Transmission Date: 20090506
  Serious: Yes (Other)
  Sender: FDA-Public Use
  Company Number: US-AMGEN-QUU268462

PATIENT
  Sex: Female
  Weight: 92.6 kg

DRUGS (9)
  1. ENBREL [Suspect]
     Indication: RHEUMATOID ARTHRITIS
     Route: 058
     Dates: start: 20010101, end: 20080101
  2. LIBRAX [Concomitant]
  3. LABETALOL HCL [Concomitant]
  4. LUNESTA [Concomitant]
  5. TYLENOL (CAPLET) [Concomitant]
  6. LIDODERM PATCH (ENDO PHARMACEUTICALS) [Concomitant]
     Route: 062
  7. BENTYL [Concomitant]
  8. ADALIMUMAB [Concomitant]
     Dates: start: 20030701
  9. METHOTREXATE [Concomitant]
     Route: 058
     Dates: start: 19960101, end: 20040801

REACTIONS (13)
  - ABSCESS [None]
  - BASAL CELL CARCINOMA [None]
  - ESCHERICHIA INFECTION [None]
  - FOLLICULITIS [None]
  - FUNGAL INFECTION [None]
  - HYPERSENSITIVITY [None]
  - MUSCULOSKELETAL STIFFNESS [None]
  - ONYCHOMYCOSIS [None]
  - ORAL CANDIDIASIS [None]
  - PAIN IN EXTREMITY [None]
  - PROCEDURAL COMPLICATION [None]
  - PRURITUS GENERALISED [None]
  - UPPER RESPIRATORY TRACT INFECTION [None]
